FAERS Safety Report 8931900 (Version 1)
Quarter: 2012Q4

REPORT INFORMATION
  Report Type: 
  Country: ES (occurrence: ES)
  Receive Date: 20121128
  Receipt Date: 20121128
  Transmission Date: 20130627
  Serious: Yes (Hospitalization, Other)
  Sender: FDA-Public Use
  Company Number: ES-ELI_LILLY_AND_COMPANY-ES201211005162

PATIENT
  Sex: Female

DRUGS (1)
  1. FORSTEO [Suspect]
     Indication: OSTEOPOROSIS
     Dosage: 20 ug, UNK
     Dates: start: 201111

REACTIONS (5)
  - Cardiac failure [Unknown]
  - Pneumonia [Unknown]
  - Arrhythmia [Unknown]
  - Vomiting [Unknown]
  - Diarrhoea [Unknown]
